FAERS Safety Report 13135507 (Version 2)
Quarter: 2017Q2

REPORT INFORMATION
  Report Type: Spontaneous
  Country: US (occurrence: US)
  Receive Date: 20170120
  Receipt Date: 20170419
  Transmission Date: 20170830
  Serious: Yes (Hospitalization, Other)
  Sender: FDA-Public Use
  Company Number: US-BRISTOL-MYERS SQUIBB COMPANY-BMS-2017-002313

PATIENT
  Age: 65 Year
  Sex: Male

DRUGS (1)
  1. YERVOY [Suspect]
     Active Substance: IPILIMUMAB
     Indication: MALIGNANT MELANOMA
     Dosage: 10 MG/KG, Q2WK
     Route: 042
     Dates: start: 20160914, end: 20161005

REACTIONS (6)
  - Intestinal perforation [Not Recovered/Not Resolved]
  - Rash [Not Recovered/Not Resolved]
  - Prescribed overdose [Unknown]
  - Enterocolitis [Not Recovered/Not Resolved]
  - Pelvic abscess [Not Recovered/Not Resolved]
  - Abscess drainage [Unknown]

NARRATIVE: CASE EVENT DATE: 20160921
